FAERS Safety Report 7241791-4 (Version None)
Quarter: 2011Q1

REPORT INFORMATION
  Report Type: 
  Country: None (occurrence: None)
  Receive Date: 20110124
  Receipt Date: 20110110
  Transmission Date: 20110831
  Serious: Yes (Other)
  Sender: FDA-Public Use
  Company Number: CA-GENENTECH-287911

PATIENT
  Sex: Female

DRUGS (4)
  1. XOLAIR [Suspect]
     Indication: ASTHMA
     Dosage: 225 MG, Q2W
     Route: 058
     Dates: start: 20090422
  2. XOLAIR [Suspect]
     Dosage: 225 MG, Q2W
     Route: 058
     Dates: start: 20091214
  3. XOLAIR [Suspect]
     Dosage: 225 MG, Q2W
     Route: 058
     Dates: start: 20090908
  4. PREDNISONE [Concomitant]
     Indication: PRODUCT USED FOR UNKNOWN INDICATION
     Dosage: UNK

REACTIONS (4)
  - SINUSITIS [None]
  - WHEEZING [None]
  - WEIGHT DECREASED [None]
  - RESPIRATORY TRACT INFECTION BACTERIAL [None]
